FAERS Safety Report 4713097-6 (Version None)
Quarter: 2005Q3

REPORT INFORMATION
  Report Type: 
  Country: None (occurrence: None)
  Receive Date: 20050712
  Receipt Date: 20050712
  Transmission Date: 20060218
  Serious: Yes (Hospitalization)
  Sender: FDA-Public Use
  Company Number: None

PATIENT
  Age: 65 Year
  Sex: Male
  Weight: 65.2 kg

DRUGS (8)
  1. RISPERIDONE [Suspect]
     Indication: DEMENTIA
     Dosage: 2 MG, 1 MG BID, ORAL
     Route: 048
     Dates: start: 20050328, end: 20050413
  2. MEMANTINE [Concomitant]
  3. DONEPEZIL HCL [Concomitant]
  4. LORATADINE [Concomitant]
  5. SYNTHROID [Concomitant]
  6. CLOPIDOGREL BISULFATE [Concomitant]
  7. SIMVASTATIN [Concomitant]
  8. METOPROLOL [Concomitant]

REACTIONS (2)
  - DYSPHAGIA [None]
  - MENTAL STATUS CHANGES [None]
